FAERS Safety Report 9149865 (Version 1)
Quarter: 2013Q1

REPORT INFORMATION
  Report Type: Spontaneous
  Country: US (occurrence: US)
  Receive Date: 20130308
  Receipt Date: 20130308
  Transmission Date: 20140127
  Serious: No
  Sender: FDA-Public Use
  Company Number: US-ENDO PHARMACEUTICALS INC.-OPCR20120829

PATIENT
  Sex: Female

DRUGS (3)
  1. OPANA ER 20MG [Suspect]
     Indication: NECK PAIN
     Route: 048
     Dates: start: 201205
  2. OPANA ER [Concomitant]
     Indication: NECK PAIN
     Dosage: UNKNOWN
     Route: 048
     Dates: start: 201201, end: 201205
  3. DILAUDID [Concomitant]
     Indication: BREAKTHROUGH PAIN
     Route: 048

REACTIONS (3)
  - Medication residue present [Unknown]
  - Withdrawal syndrome [Unknown]
  - Drug ineffective [Unknown]
